FAERS Safety Report 7228344-9 (Version None)
Quarter: 2011Q1

REPORT INFORMATION
  Report Type: 
  Country: None (occurrence: None)
  Receive Date: 20110114
  Receipt Date: 20101122
  Transmission Date: 20110831
  Serious: Yes (Death)
  Sender: FDA-Public Use
  Company Number: US-PURDUE-USA-2010-0056242

PATIENT
  Sex: Female

DRUGS (2)
  1. OXYCONTIN [Suspect]
     Indication: BACK PAIN
  2. OXYCONTIN [Suspect]
     Indication: PANCREATITIS
     Dosage: UNK
     Dates: start: 19980814, end: 20000414

REACTIONS (2)
  - RENAL FAILURE [None]
  - WEIGHT INCREASED [None]
